FAERS Safety Report 8001122-9 (Version None)
Quarter: 2011Q4

REPORT INFORMATION
  Report Type: 
  Country: None (occurrence: None)
  Receive Date: 20111222
  Receipt Date: 20111206
  Transmission Date: 20120403
  Serious: No
  Sender: FDA-Public Use
  Company Number: US-BAYER-2011-117510

PATIENT
  Age: 62 Year
  Sex: Male

DRUGS (2)
  1. LOSARTAN POTASSIUM [Concomitant]
     Indication: BLOOD PRESSURE ABNORMAL
     Dosage: 100 MG, QD
  2. STAXYN [Suspect]
     Indication: ERECTILE DYSFUNCTION
     Dosage: 10 MG, UNK
     Route: 048
     Dates: start: 20100101, end: 20111205

REACTIONS (1)
  - THERAPEUTIC RESPONSE UNEXPECTED [None]
